FAERS Safety Report 5786257-3 (Version None)
Quarter: 2008Q2

REPORT INFORMATION
  Report Type: 
  Country: None (occurrence: None)
  Receive Date: 20080624
  Receipt Date: 20080613
  Transmission Date: 20081010
  Serious: Yes (Hospitalization, Other)
  Sender: FDA-Public Use
  Company Number: US-ELI_LILLY_AND_COMPANY-US200806003314

PATIENT
  Sex: Female

DRUGS (5)
  1. CYMBALTA [Suspect]
  2. NEURONTIN [Concomitant]
  3. INSULIN [Concomitant]
  4. OTHER ANTIHYPERTENSIVES [Concomitant]
  5. ANALGESICS [Concomitant]

REACTIONS (2)
  - GASTROINTESTINAL TUBE INSERTION [None]
  - HOSPITALISATION [None]
